FAERS Safety Report 9779985 (Version 2)
Quarter: 2014Q1

REPORT INFORMATION
  Report Type: Spontaneous
  Country: US (occurrence: US)
  Receive Date: 20131223
  Receipt Date: 20140108
  Transmission Date: 20141002
  Serious: No
  Sender: FDA-Public Use
  Company Number: US-009507513-1312USA005778

PATIENT
  Age: 69 Year
  Sex: Female

DRUGS (2)
  1. PEGINTRON [Suspect]
     Indication: SQUAMOUS CELL CARCINOMA
     Dosage: 1.5 MILLION IU, TIW
     Route: 026
  2. PEGINTRON [Suspect]
     Dosage: 1.5 MILLION IU, BIW

REACTIONS (4)
  - Injection site erythema [Unknown]
  - Headache [Unknown]
  - Pyrexia [Unknown]
  - Off label use [Unknown]
